FAERS Safety Report 10993400 (Version 2)
Quarter: 2015Q4

REPORT INFORMATION
  Report Type: Spontaneous
  Country: US (occurrence: US)
  Receive Date: 20150407
  Receipt Date: 20151220
  Transmission Date: 20160304
  Serious: Yes (Hospitalization, Other)
  Sender: FDA-Public Use
  Company Number: US-JNJFOC-20150322578

PATIENT
  Age: 32 Year
  Sex: Male
  Weight: 94.8 kg

DRUGS (7)
  1. TYLENOL REGULAR STRENGTH [Suspect]
     Active Substance: ACETAMINOPHEN
     Indication: CORNEAL ABRASION
     Dosage: FREQUENCY OF USE AS NEEDED
     Route: 048
     Dates: start: 201306, end: 20130702
  2. MOTRIN [Suspect]
     Active Substance: IBUPROFEN
     Indication: EYE PAIN
     Route: 065
     Dates: start: 2013
  3. ALCOHOL. [Suspect]
     Active Substance: ALCOHOL
     Indication: PRODUCT USED FOR UNKNOWN INDICATION
     Dosage: 3-4 VODKA DRINKS DAILY FOR 14 DAYS AND PRIOR TO THAT 2-3 DRINKS FOR 3-4 TIMES PER WEEK.
     Route: 065
  4. TYLENOL EXTRA STRENGTH [Suspect]
     Active Substance: ACETAMINOPHEN
     Indication: CORNEAL ABRASION
     Dosage: 4 TABLETS AT A TIME ORALLY FOR LAST 7-8 DAYS, ALSO REPORTED AS 4-12 PILLS PER DAY.
     Route: 048
     Dates: start: 201306, end: 20130702
  5. MOTRIN [Suspect]
     Active Substance: IBUPROFEN
     Indication: BACK PAIN
     Route: 065
     Dates: start: 2013
  6. ROXICET [Suspect]
     Active Substance: ACETAMINOPHEN\OXYCODONE HYDROCHLORIDE
     Indication: PRODUCT USED FOR UNKNOWN INDICATION
     Dosage: 2 GULPS
     Route: 048
     Dates: start: 20130701
  7. ZOLOFT [Concomitant]
     Active Substance: SERTRALINE HYDROCHLORIDE
     Indication: PRODUCT USED FOR UNKNOWN INDICATION
     Route: 065

REACTIONS (26)
  - Gallbladder disorder [None]
  - Aspergillus test positive [None]
  - Acute hepatic failure [Recovering/Resolving]
  - Pneumonia [None]
  - Hyperventilation [None]
  - Pleural effusion [None]
  - Seroma [None]
  - Acute kidney injury [Recovering/Resolving]
  - Staphylococcal infection [None]
  - Liver transplant [Recovering/Resolving]
  - Accidental overdose [Recovering/Resolving]
  - Bacterial test [None]
  - Atelectasis [None]
  - Brain oedema [None]
  - Epstein-Barr virus antigen positive [None]
  - Aspiration tracheal [None]
  - Candida test positive [None]
  - Biloma [None]
  - Abscess [None]
  - Hepatic encephalopathy [Recovering/Resolving]
  - Coagulopathy [None]
  - Aspergillus infection [None]
  - Thrombotic thrombocytopenic purpura [None]
  - Chromaturia [None]
  - Asthenia [None]
  - Hepatitis A virus test positive [None]

NARRATIVE: CASE EVENT DATE: 201307
